FAERS Safety Report 7822013-X (Version None)
Quarter: 2011Q4

REPORT INFORMATION
  Report Type: 
  Country: None (occurrence: None)
  Receive Date: 20111018
  Receipt Date: 20111007
  Transmission Date: 20120403
  Serious: Yes (Other)
  Sender: FDA-Public Use
  Company Number: PHEH2011US05137

PATIENT
  Sex: Female
  Weight: 98 kg

DRUGS (6)
  1. AFINITOR [Suspect]
     Indication: RENAL CELL CARCINOMA
     Dosage: 10 MG, DAILY
     Route: 048
     Dates: start: 20110923
  2. SUTENT [Concomitant]
     Dosage: 50 MG, DAILY
     Route: 048
  3. CATHARTICS [Concomitant]
     Dosage: 600 MEQ, BID
     Route: 048
  4. VERAPAMIL [Concomitant]
     Dosage: 360 MG, QD
     Route: 048
  5. SINGULAIR [Concomitant]
     Dosage: 10 MG, QD
     Route: 048
  6. VITAMIN D [Concomitant]
     Route: 048

REACTIONS (7)
  - ASTHMA [None]
  - DYSPNOEA [None]
  - HAEMATOCRIT DECREASED [None]
  - BLOOD CREATINE INCREASED [None]
  - MONOCYTE COUNT DECREASED [None]
  - BLOOD UREA INCREASED [None]
  - RED BLOOD CELL COUNT DECREASED [None]
